FAERS Safety Report 8934535 (Version 1)
Quarter: 2012Q4

REPORT INFORMATION
  Report Type: 
  Country: US (occurrence: US)
  Receive Date: 20121129
  Receipt Date: 20121129
  Transmission Date: 20130627
  Serious: No
  Sender: FDA-Public Use
  Company Number: US-GLAXOSMITHKLINE-A0984921A

PATIENT
  Age: 4 Year
  Sex: Male

DRUGS (3)
  1. FLOVENT [Suspect]
     Indication: BRONCHITIS
     Dosage: 1PUFF Twice per day
     Route: 055
     Dates: start: 20120714
  2. MULTIVITAMIN [Concomitant]
  3. ACETAMINOPHEN [Concomitant]

REACTIONS (1)
  - Cough [Not Recovered/Not Resolved]
